FAERS Safety Report 7808907-X (Version None)
Quarter: 2011Q4

REPORT INFORMATION
  Report Type: 
  Country: None (occurrence: None)
  Receive Date: 20111006
  Receipt Date: 20110923
  Transmission Date: 20120403
  Serious: Yes (Other)
  Sender: FDA-Public Use
  Company Number: 2011SP045433

PATIENT
  Age: 29 Year
  Sex: Female
  Weight: 75 kg

DRUGS (2)
  1. CERAZETTE (DESOGESTREL /00754001/) [Suspect]
     Indication: CONTRACEPTION
     Dosage: QD; PO QD;PO
     Route: 048
     Dates: start: 20100201, end: 20101001
  2. CERAZETTE (DESOGESTREL /00754001/) [Suspect]
     Indication: CONTRACEPTION
     Dosage: QD; PO QD;PO
     Route: 048
     Dates: start: 20110201, end: 20110501

REACTIONS (3)
  - MATERNAL EXPOSURE BEFORE PREGNANCY [None]
  - BLIGHTED OVUM [None]
  - ABORTION SPONTANEOUS [None]
